FAERS Safety Report 15396997 (Version 1)
Quarter: 2018Q3

REPORT INFORMATION
  Report Type: Spontaneous
  Country: US (occurrence: US)
  Receive Date: 20180913
  Receipt Date: 20180913
  Transmission Date: 20181010
  Serious: No
  Sender: FDA-Public Use
  Company Number: None

PATIENT
  Age: 66 Year
  Sex: Female
  Weight: 69.75 kg

DRUGS (10)
  1. PSYILLIUM [Concomitant]
  2. AMPYRA, [Concomitant]
  3. VITAMIN D [Concomitant]
     Active Substance: CHOLECALCIFEROL
  4. MELATONIN [Concomitant]
     Active Substance: MELATONIN
  5. NALTRAXONE [Suspect]
     Active Substance: NALTREXONE
     Indication: MULTIPLE SCLEROSIS
     Dosage: ?          QUANTITY:30 CAPSULE(S);?
     Route: 048
     Dates: start: 20180816, end: 20180906
  6. BACLOFEN, [Concomitant]
     Active Substance: BACLOFEN
  7. OXYBUTININ, [Concomitant]
  8. ALPHA LIPOIC, [Concomitant]
  9. DEXTRAMPHETAMINE [Concomitant]
  10. ACIDOPHOLOS [Concomitant]

REACTIONS (3)
  - Therapy cessation [None]
  - Abnormal dreams [None]
  - Drug ineffective [None]

NARRATIVE: CASE EVENT DATE: 20180906
